FAERS Safety Report 13689847 (Version 4)
Quarter: 2017Q3

REPORT INFORMATION
  Report Type: Report from Study
  Country: US (occurrence: US)
  Receive Date: 20170626
  Receipt Date: 20170707
  Transmission Date: 20171127
  Serious: Yes (Hospitalization, Other)
  Sender: FDA-Public Use
  Company Number: US-GILEAD-2017-0280087

PATIENT
  Age: 69 Year
  Sex: Female

DRUGS (3)
  1. REMODULIN [Concomitant]
     Active Substance: TREPROSTINIL
  2. ELIQUIS [Concomitant]
     Active Substance: APIXABAN
  3. AMBRISENTAN [Suspect]
     Active Substance: AMBRISENTAN
     Indication: PRODUCT USED FOR UNKNOWN INDICATION
     Dosage: 10 MG, QD
     Route: 065
     Dates: start: 20101130

REACTIONS (4)
  - Atrial fibrillation [Unknown]
  - Cardiac failure congestive [Unknown]
  - Asthenia [Not Recovered/Not Resolved]
  - Pulmonary hypertension [Unknown]
